FAERS Safety Report 10534311 (Version 1)
Quarter: 2014Q4

REPORT INFORMATION
  Report Type: Report from Study
  Country: US (occurrence: US)
  Receive Date: 20141022
  Receipt Date: 20141022
  Transmission Date: 20150529
  Serious: Yes (Life-Threatening, Hospitalization, Disabling, Other)
  Sender: FDA-Public Use
  Company Number: PHHY2014US137015

PATIENT
  Age: 62 Year
  Sex: Male

DRUGS (7)
  1. LANTUS [Concomitant]
     Active Substance: INSULIN GLARGINE
     Indication: PRODUCT USED FOR UNKNOWN INDICATION
     Dosage: UKN
     Route: 065
  2. PROTONIX [Concomitant]
     Active Substance: PANTOPRAZOLE SODIUM
     Indication: PRODUCT USED FOR UNKNOWN INDICATION
     Dosage: UKN
     Route: 065
  3. CELEXA [Concomitant]
     Active Substance: CITALOPRAM HYDROBROMIDE
     Indication: PRODUCT USED FOR UNKNOWN INDICATION
     Dosage: UKN
     Route: 065
  4. BELATACEPT [Suspect]
     Active Substance: BELATACEPT
     Indication: RENAL TRANSPLANT
     Dosage: 750 MG, (10 MG PER KG)
     Route: 042
     Dates: start: 20130128
  5. MYFORTIC [Suspect]
     Active Substance: MYCOPHENOLATE SODIUM
     Indication: RENAL TRANSPLANT
     Dosage: 360 MG, BID
     Route: 048
     Dates: start: 20130419
  6. BELATACEPT [Suspect]
     Active Substance: BELATACEPT
     Dosage: 250 MG, 1 MONTH (3.6 MG PER KG)
     Route: 042
     Dates: end: 20140815
  7. METOPROLOL [Concomitant]
     Active Substance: METOPROLOL
     Indication: PRODUCT USED FOR UNKNOWN INDICATION
     Dosage: UKN
     Route: 065

REACTIONS (10)
  - Post transplant lymphoproliferative disorder [Recovering/Resolving]
  - Diffuse large B-cell lymphoma [Unknown]
  - Haemorrhagic stroke [Recovering/Resolving]
  - Back pain [Unknown]
  - Vasogenic cerebral oedema [Recovering/Resolving]
  - Glioma [Recovering/Resolving]
  - Muscular weakness [Unknown]
  - Dizziness [Unknown]
  - Subarachnoid haemorrhage [Unknown]
  - Central nervous system necrosis [Unknown]

NARRATIVE: CASE EVENT DATE: 20140829
